FAERS Safety Report 6266748-1 (Version None)
Quarter: 2009Q3

REPORT INFORMATION
  Report Type: 
  Country: None (occurrence: None)
  Receive Date: 20090710
  Receipt Date: 20090710
  Transmission Date: 20100115
  Serious: Yes (Hospitalization)
  Sender: FDA-Public Use
  Company Number: None

PATIENT
  Age: 65 Year
  Sex: Male
  Weight: 118 kg

DRUGS (2)
  1. PEG-INTRON [Suspect]
     Indication: MALIGNANT MELANOMA
     Dosage: 709MCG QWEEK SQ
     Route: 058
     Dates: start: 20090630
  2. HYPERACUTE MELANOMA VACCINE (HAM VACCINE) [Concomitant]

REACTIONS (9)
  - ASTHENIA [None]
  - CHILLS [None]
  - DEHYDRATION [None]
  - DIARRHOEA [None]
  - FATIGUE [None]
  - HYPOPHAGIA [None]
  - MALAISE [None]
  - PYREXIA [None]
  - TREMOR [None]
